FAERS Safety Report 6346765-3 (Version None)
Quarter: 2009Q3

REPORT INFORMATION
  Report Type: 
  Country: None (occurrence: None)
  Receive Date: 20090904
  Receipt Date: 20090820
  Transmission Date: 20100115
  Serious: Yes (Other)
  Sender: FDA-Public Use
  Company Number: PHHY2009CA35369

PATIENT
  Age: 85 Year
  Sex: Female

DRUGS (2)
  1. VISUDYNE [Suspect]
  2. LUCENTIS [Concomitant]

REACTIONS (2)
  - BLINDNESS UNILATERAL [None]
  - PRODUCT QUALITY ISSUE [None]
